FAERS Safety Report 22240106 (Version 1)
Quarter: 2023Q2

REPORT INFORMATION
  Report Type: Spontaneous
  Country: IT (occurrence: IT)
  Receive Date: 20230421
  Receipt Date: 20230421
  Transmission Date: 20230721
  Serious: Yes (Hospitalization)
  Sender: FDA-Public Use
  Company Number: None

PATIENT
  Age: 39 Year
  Sex: Female
  Weight: 65 kg

DRUGS (8)
  1. RUXIENCE [Suspect]
     Active Substance: RITUXIMAB-PVVR
     Indication: Rheumatoid arthritis
     Dosage: 1000 MG FIRST DOSE RITUXIMAB 1000 MG ON 23FEB2023 AT 11.30 AM, SECOND DOSE RITUXIMAB 1000 MG ON 10MA
     Route: 042
     Dates: start: 20230223, end: 20230310
  2. PLAQUENIL [Concomitant]
     Active Substance: HYDROXYCHLOROQUINE SULFATE
     Indication: Rheumatoid arthritis
     Dosage: 4 MG (2 MG TABLET 2 X NIGHT)
     Route: 048
  3. MEDROL [Concomitant]
     Active Substance: METHYLPREDNISOLONE
     Indication: Rheumatoid arthritis
     Dosage: 16 MG
     Route: 048
  4. ACETAMOL [PARACETAMOL] [Concomitant]
     Indication: Premedication
     Route: 048
     Dates: start: 20230310, end: 20230310
  5. PANTOPRAZOLE SODIUM [Concomitant]
     Active Substance: PANTOPRAZOLE SODIUM
     Indication: Prophylaxis against gastrointestinal ulcer
     Dosage: 40 MG, 1X/DAY
     Route: 048
  6. TRIMETON [Concomitant]
     Active Substance: CHLORPHENIRAMINE MALEATE
     Indication: Premedication
     Dosage: 1 DF (1 VIAL IN 100 ML PHYSIOLOGICAL SOLUTION)
     Route: 042
     Dates: start: 20230310, end: 20230310
  7. NAPROSYN [Concomitant]
     Active Substance: NAPROXEN
     Indication: Rheumatoid arthritis
     Dosage: 500 MG, 2X/DAY
     Route: 048
  8. SOLU-MEDROL [Concomitant]
     Active Substance: METHYLPREDNISOLONE SODIUM SUCCINATE
     Indication: Premedication
     Dosage: 100 MG VIAL IN PHYSIOLOGICAL SOLUTION 100
     Route: 042
     Dates: start: 20230310, end: 20230310

REACTIONS (7)
  - Dermatitis allergic [Recovered/Resolved]
  - Hypoxia [Recovered/Resolved]
  - Asthma [Recovered/Resolved]
  - Lip oedema [Recovered/Resolved]
  - Oedema [Recovered/Resolved]
  - Bronchospasm [Recovered/Resolved]
  - Epiglottis dysfunction [Recovered/Resolved]

NARRATIVE: CASE EVENT DATE: 20230223
